FAERS Safety Report 13121930 (Version 4)
Quarter: 2017Q4

REPORT INFORMATION
  Report Type: Spontaneous
  Country: US (occurrence: US)
  Receive Date: 20170117
  Receipt Date: 20171013
  Transmission Date: 20180320
  Serious: Yes (Hospitalization, Other)
  Sender: FDA-Public Use
  Company Number: US-PFIZER INC-2017018555

PATIENT
  Age: 81 Year
  Sex: Female
  Weight: 91 kg

DRUGS (3)
  1. VORICONAZOLE. [Suspect]
     Active Substance: VORICONAZOLE
     Indication: MENINGITIS FUNGAL
     Dosage: 200 MG, 2X/DAY
     Route: 048
     Dates: start: 201210, end: 201312
  2. VORICONAZOLE. [Suspect]
     Active Substance: VORICONAZOLE
     Dosage: UNK, 2X/DAY (300-550MG TWICE A DAY)
     Dates: start: 20121006, end: 20131010
  3. AMPHOTERICIN B. [Concomitant]
     Active Substance: AMPHOTERICIN B
     Indication: MENINGITIS FUNGAL
     Dosage: UNK
     Dates: start: 20121006, end: 20121024

REACTIONS (14)
  - Fibula fracture [Unknown]
  - Fluoride increased [Recovered/Resolved]
  - Fall [Unknown]
  - Facial bones fracture [Unknown]
  - Foot fracture [Unknown]
  - Humerus fracture [Unknown]
  - Patella fracture [Unknown]
  - Fracture [Not Recovered/Not Resolved]
  - Hand fracture [Unknown]
  - Hypotension [Unknown]
  - Osteogenesis imperfecta [Not Recovered/Not Resolved]
  - Blood glucose decreased [Unknown]
  - Femur fracture [Unknown]
  - Ankle fracture [Unknown]

NARRATIVE: CASE EVENT DATE: 2013
